FAERS Safety Report 15283813 (Version 2)
Quarter: 2019Q3

REPORT INFORMATION
  Report Type: Spontaneous
  Country: US (occurrence: US)
  Receive Date: 20180816
  Receipt Date: 20190919
  Transmission Date: 20191004
  Serious: Yes (Other)
  Sender: FDA-Public Use
  Company Number: US-PFIZER INC-2017547540

PATIENT
  Age: 59 Year
  Sex: Male

DRUGS (1)
  1. SUTENT [Suspect]
     Active Substance: SUNITINIB MALATE
     Indication: RENAL CANCER
     Dosage: 50 MG, CYCLIC, (1 CAPSULE BY MOUTH EVERY DAY FOR 28 DAYS THEN 14 DAYS OFF)
     Route: 048
     Dates: start: 201710

REACTIONS (9)
  - Diarrhoea [Unknown]
  - Haematopoietic neoplasm [Unknown]
  - Scrotal disorder [Unknown]
  - Abdominal pain upper [Unknown]
  - Second primary malignancy [Unknown]
  - Pneumothorax [Unknown]
  - Back pain [Unknown]
  - Pulmonary thrombosis [Unknown]
  - Abdominal discomfort [Unknown]
